FAERS Safety Report 8353318 (Version 6)
Quarter: 2012Q4

REPORT INFORMATION
  Report Type: 
  Country: US (occurrence: US)
  Receive Date: 20120125
  Receipt Date: 20121226
  Transmission Date: 20130627
  Serious: Yes (Other)
  Sender: FDA-Public Use
  Company Number: US-BAYER-2012-007483

PATIENT
  Age: 23 Year
  Sex: Female
  Weight: 90.7 kg

DRUGS (9)
  1. MIRENA [Suspect]
     Indication: CONTRACEPTION
     Dosage: 20 ?g/d, CONT
     Route: 015
     Dates: start: 20111021
  2. PHENERGAN [Concomitant]
     Dosage: UNK
     Route: 048
  3. PRENATAL [Concomitant]
     Route: 048
  4. PROMETHAZINE [Concomitant]
     Indication: NAUSEA
     Dosage: UNK UNK, PRN
     Route: 054
     Dates: start: 20120629
  5. PROMETHAZINE [Concomitant]
     Indication: VOMITING
  6. REGLAN [Concomitant]
     Route: 048
  7. ZITHROMAX [Concomitant]
     Route: 048
  8. ZITHROMAX [Concomitant]
     Route: 048
  9. ZOFRAN [Concomitant]
     Route: 048

REACTIONS (8)
  - Device expulsion [None]
  - Pregnancy [None]
  - Device issue [None]
  - Device dislocation [None]
  - Device dislocation [None]
  - Nausea [None]
  - Vomiting [None]
  - Drug ineffective [None]
